FAERS Safety Report 14951715 (Version 2)
Quarter: 2018Q2

REPORT INFORMATION
  Report Type: Spontaneous
  Country: US (occurrence: US)
  Receive Date: 20180530
  Receipt Date: 20180601
  Transmission Date: 20180711
  Serious: Yes (Hospitalization, Other)
  Sender: FDA-Public Use
  Company Number: US-PFIZER INC-2018216751

PATIENT
  Age: 51 Year
  Sex: Female
  Weight: 73.47 kg

DRUGS (3)
  1. LYRICA [Suspect]
     Active Substance: PREGABALIN
     Indication: PAIN
     Dosage: 90 MG, UNK
  2. LYRICA [Suspect]
     Active Substance: PREGABALIN
     Indication: ARTHRALGIA
     Dosage: 600 MG, DAILY (THREE 200 MG CAPSULES BY MOUTH, ONE IN THE MORNING, ONE AT NOON AND ONE AT NIGHT)
     Route: 048
     Dates: start: 2008
  3. LYRICA [Suspect]
     Active Substance: PREGABALIN
     Indication: NECK PAIN

REACTIONS (6)
  - Respiratory failure [Unknown]
  - Tremor [Not Recovered/Not Resolved]
  - Malaise [Unknown]
  - Coma [Recovered/Resolved]
  - Dyspnoea [Not Recovered/Not Resolved]
  - Insomnia [Not Recovered/Not Resolved]

NARRATIVE: CASE EVENT DATE: 2011
